FAERS Safety Report 17750637 (Version 1)
Quarter: 2020Q2

REPORT INFORMATION
  Report Type: Spontaneous
  Country: US (occurrence: US)
  Receive Date: 20200505
  Receipt Date: 20200505
  Transmission Date: 20200714
  Serious: No
  Sender: FDA-Public Use
  Company Number: None

PATIENT
  Age: 18 Year
  Sex: Male

DRUGS (1)
  1. STELARA [Suspect]
     Active Substance: USTEKINUMAB
     Indication: CROHN^S DISEASE
     Dosage: ?          OTHER FREQUENCY:EVERY 8 WEEKS; UNDER THE SKIN?
     Route: 058
     Dates: start: 20190905

REACTIONS (3)
  - Symptom recurrence [None]
  - Fatigue [None]
  - Inflammation [None]

NARRATIVE: CASE EVENT DATE: 20200421
